FAERS Safety Report 6142885-7 (Version None)
Quarter: 2009Q2

REPORT INFORMATION
  Report Type: 
  Country: None (occurrence: None)
  Receive Date: 20090403
  Receipt Date: 20090324
  Transmission Date: 20091009
  Serious: Yes (Other)
  Sender: FDA-Public Use
  Company Number: FR-PFIZER INC-2008080551

PATIENT

DRUGS (1)
  1. XALATAN [Suspect]
     Indication: OCULAR HYPERTENSION
     Dosage: 1 DROP, 1X/DAY
     Route: 047

REACTIONS (1)
  - ASTHMATIC CRISIS [None]
